FAERS Safety Report 4909888-9 (Version None)
Quarter: 2006Q1

REPORT INFORMATION
  Report Type: 
  Country: None (occurrence: None)
  Receive Date: 20060213
  Receipt Date: 20060201
  Transmission Date: 20060701
  Serious: Yes (Hospitalization, Other)
  Sender: FDA-Public Use
  Company Number: PHBS2006NL01758

PATIENT
  Sex: Male

DRUGS (8)
  1. CYCLOSPORINE [Suspect]
     Indication: RENAL TRANSPLANT
     Dosage: UNK, UNK
     Route: 065
     Dates: start: 19950101
  2. CYCLOSPORINE [Suspect]
     Dates: start: 20000101
  3. AZATHIOPRINE [Suspect]
     Indication: RENAL TRANSPLANT
     Dosage: UNK, UNK
     Route: 065
     Dates: start: 19950101
  4. AZATHIOPRINE [Suspect]
     Dates: start: 20010901
  5. PREDNISOLONE [Suspect]
     Indication: RENAL TRANSPLANT
     Dosage: UNK, UNK
     Route: 065
     Dates: start: 19950101
  6. PREDNISOLONE [Suspect]
     Dates: start: 20000101
  7. ORTHOCLONE OKT3 [Concomitant]
     Indication: KIDNEY TRANSPLANT REJECTION
     Dosage: 5 MG/DAY
     Route: 065
     Dates: start: 20000101
  8. MYCOPHENOLATE MOFETIL [Suspect]
     Indication: RENAL TRANSPLANT
     Dosage: 2 G/DAY
     Route: 065
     Dates: start: 20000101, end: 20010901

REACTIONS (12)
  - BRONCHIECTASIS [None]
  - COUGH [None]
  - DISEASE RECURRENCE [None]
  - HAEMODIALYSIS [None]
  - HAEMOPHILUS INFECTION [None]
  - KIDNEY TRANSPLANT REJECTION [None]
  - NEPHRECTOMY [None]
  - PNEUMONIA [None]
  - PYREXIA [None]
  - RENAL FAILURE CHRONIC [None]
  - SINUSITIS [None]
  - UPPER RESPIRATORY TRACT INFECTION [None]
